FAERS Safety Report 19963697 (Version 1)
Quarter: 2021Q4

REPORT INFORMATION
  Report Type: Spontaneous
  Country: US (occurrence: US)
  Receive Date: 20211018
  Receipt Date: 20211018
  Transmission Date: 20220303
  Serious: Yes (Hospitalization, Disabling)
  Sender: FDA-Public Use
  Company Number: None

PATIENT
  Age: 52 Year
  Sex: Female
  Weight: 70.65 kg

DRUGS (17)
  1. LORATADINE ANTIHISTAMINE [Suspect]
     Active Substance: LORATADINE
     Indication: Hypersensitivity
     Dosage: ?          QUANTITY:1 TABLET(S);
     Route: 048
     Dates: start: 20211005, end: 20211016
  2. LORATADINE ANTIHISTAMINE [Suspect]
     Active Substance: LORATADINE
     Indication: Asthma
  3. NORTRIPTYLINE [Suspect]
     Active Substance: NORTRIPTYLINE
     Indication: Vestibular migraine
     Dosage: ?          QUANTITY:3 CAPSULE(S);
     Route: 048
  4. NAPROXEN [Concomitant]
     Active Substance: NAPROXEN
  5. ATORVASTATIN CALCIUM [Concomitant]
     Active Substance: ATORVASTATIN CALCIUM
  6. GUAIFENESIN [Concomitant]
     Active Substance: GUAIFENESIN
  7. MECLIZINE [Concomitant]
     Active Substance: MECLIZINE HYDROCHLORIDE
  8. VENLAFAXINE [Concomitant]
     Active Substance: VENLAFAXINE HYDROCHLORIDE
  9. FLUTICASONE [Concomitant]
     Active Substance: FLUTICASONE
  10. SALMETEROL [Concomitant]
     Active Substance: SALMETEROL
  11. MUCINEX DM [Concomitant]
     Active Substance: DEXTROMETHORPHAN HYDROBROMIDE\GUAIFENESIN
  12. FERROUS SULFATE [Concomitant]
     Active Substance: FERROUS SULFATE
  13. ACETAMINOPHEN [Concomitant]
     Active Substance: ACETAMINOPHEN
  14. VICKS NYQUIL [Concomitant]
     Active Substance: ACETAMINOPHEN\DEXTROMETHORPHAN HYDROBROMIDE\DOXYLAMINE SUCCINATE
  15. GUMMY VITAMINS [Concomitant]
  16. MAGNESIUM [Concomitant]
     Active Substance: MAGNESIUM
  17. VITAMIN C [Concomitant]
     Active Substance: ASCORBIC ACID

REACTIONS (1)
  - Hypersensitivity [None]

NARRATIVE: CASE EVENT DATE: 20211016
